FAERS Safety Report 17484507 (Version 1)
Quarter: 2020Q1

REPORT INFORMATION
  Report Type: Report from Study
  Country: US (occurrence: US)
  Receive Date: 20200302
  Receipt Date: 20200302
  Transmission Date: 20200409
  Serious: Yes (Other)
  Sender: FDA-Public Use
  Company Number: US-ROCHE-2555251

PATIENT

DRUGS (3)
  1. RINDOPEPIMUT [Suspect]
     Active Substance: RINDOPEPIMUT
     Indication: GLIOBLASTOMA
     Dosage: DAYS 1, 15, AND 29 AND THEN MONTHLY
     Route: 065
  2. BEVACIZUMAB. [Suspect]
     Active Substance: BEVACIZUMAB
     Indication: GLIOBLASTOMA
     Route: 042
  3. KEYHOLE LIMPET HEMOCYANIN [Suspect]
     Active Substance: KEYHOLE LIMPET HEMOCYANIN
     Indication: GLIOBLASTOMA
     Dosage: DAYS 1, 15, AND 29 AND THEN MONTHLY
     Route: 065

REACTIONS (10)
  - Fatigue [Unknown]
  - Fall [Unknown]
  - Back pain [Unknown]
  - Hemiparesis [Unknown]
  - Seizure [Unknown]
  - Headache [Unknown]
  - Hyperglycaemia [Unknown]
  - Hypertension [Unknown]
  - Nausea [Unknown]
  - Arthralgia [Unknown]
